FAERS Safety Report 14556603 (Version 2)
Quarter: 2018Q2

REPORT INFORMATION
  Report Type: Spontaneous
  Country: US (occurrence: US)
  Receive Date: 20180221
  Receipt Date: 20180510
  Transmission Date: 20180711
  Serious: No
  Sender: FDA-Public Use
  Company Number: US-PFIZER INC-2018070803

PATIENT
  Age: 48 Year
  Sex: Female
  Weight: 75 kg

DRUGS (1)
  1. CHANTIX [Suspect]
     Active Substance: VARENICLINE TARTRATE
     Indication: SMOKING CESSATION THERAPY
     Dosage: UNK
     Dates: start: 200810, end: 2010

REACTIONS (3)
  - Pain [Recovered/Resolved]
  - Weight increased [Unknown]
  - Eating disorder [Recovered/Resolved]

NARRATIVE: CASE EVENT DATE: 200810
